FAERS Safety Report 11221480 (Version 2)
Quarter: 2015Q2

REPORT INFORMATION
  Report Type: Spontaneous
  Country: US (occurrence: US)
  Receive Date: 20150626
  Receipt Date: 20150630
  Transmission Date: 20150821
  Serious: No
  Sender: FDA-Public Use
  Company Number: US-PFIZER INC-2015212956

PATIENT
  Age: 47 Year
  Sex: Female
  Weight: 79 kg

DRUGS (6)
  1. CITALOPRAM [Suspect]
     Active Substance: CITALOPRAM HYDROBROMIDE
     Dosage: 10 MG, UNK
     Dates: start: 20150605
  2. AMITRIPTYLINE [Concomitant]
     Active Substance: AMITRIPTYLINE
     Dosage: 10 MG, 1X/DAY (AT BED TIME)
  3. LYRICA [Suspect]
     Active Substance: PREGABALIN
     Indication: BURNING FEET SYNDROME
     Dosage: 50 MG, UNK
  4. LYRICA [Suspect]
     Active Substance: PREGABALIN
     Indication: FIBROMYALGIA
     Dosage: 25 MG, 1X/DAY
     Dates: start: 20150611
  5. PHENAZOPYRIDINE. [Concomitant]
     Active Substance: PHENAZOPYRIDINE
     Dosage: UNK, AS NEEDED
  6. CLONAZEPAM. [Concomitant]
     Active Substance: CLONAZEPAM
     Dosage: 0.5 MG, 1X/DAY (AT BED TIME)

REACTIONS (6)
  - Feeling drunk [Unknown]
  - Anxiety [Unknown]
  - Nausea [Not Recovered/Not Resolved]
  - Hangover [Unknown]
  - Hypoaesthesia [Unknown]
  - Dizziness [Not Recovered/Not Resolved]
